FAERS Safety Report 5086934-6 (Version None)
Quarter: 2006Q3

REPORT INFORMATION
  Report Type: 
  Country: None (occurrence: None)
  Receive Date: 20060821
  Receipt Date: 20060803
  Transmission Date: 20061208
  Serious: Yes (Hospitalization, Other)
  Sender: FDA-Public Use
  Company Number: DSA_28513_2006

PATIENT
  Age: 45 Year
  Sex: Female

DRUGS (3)
  1. TAVOR [Suspect]
     Dosage: 50 MG ONCE PO
     Route: 048
     Dates: start: 20060719, end: 20060719
  2. DOXEPIN [Suspect]
     Dosage: 500 MG ONCE PO
     Route: 048
     Dates: start: 20060716, end: 20060719
  3. SEROXAT [Suspect]
     Dosage: 400 MG ONCE PO
     Route: 048
     Dates: start: 20060719, end: 20060719

REACTIONS (5)
  - BLOOD CREATINE PHOSPHOKINASE INCREASED [None]
  - BLOOD POTASSIUM DECREASED [None]
  - MULTIPLE DRUG OVERDOSE INTENTIONAL [None]
  - SOMNOLENCE [None]
  - SUICIDE ATTEMPT [None]
